FAERS Safety Report 8948135 (Version 3)
Quarter: 2013Q1

REPORT INFORMATION
  Report Type: Spontaneous
  Country: IT (occurrence: None)
  Receive Date: 20121126
  Receipt Date: 20130114
  Transmission Date: 20140127
  Serious: Yes (Other)
  Sender: FDA-Public Use
  Company Number: 2012AP003932

PATIENT
  Age: 49 Year
  Sex: Female

DRUGS (2)
  1. LEVETIRACETAM [Suspect]
     Indication: EPILEPSY
     Dosage: 3 DF; TAB _FILM ; PO ; QD
     Route: 048
     Dates: start: 20121023, end: 20121024
  2. KEPPRA (LEVETIRACETAM) [Concomitant]

REACTIONS (4)
  - Drug effect decreased [None]
  - Epilepsy [None]
  - Vomiting [None]
  - Product substitution issue [None]
